FAERS Safety Report 7918522-5 (Version None)
Quarter: 2011Q4

REPORT INFORMATION
  Report Type: 
  Country: None (occurrence: None)
  Receive Date: 20111116
  Receipt Date: 20111114
  Transmission Date: 20120403
  Serious: Yes (Other)
  Sender: FDA-Public Use
  Company Number: JP-PFIZER INC-2011239369

PATIENT
  Age: 75 Year
  Sex: Male

DRUGS (9)
  1. URSO 250 [Concomitant]
     Dosage: 100 MG DAILY
  2. LYRICA [Suspect]
     Indication: POST HERPETIC NEURALGIA
     Dosage: 75 MG, 2X/DAY
     Route: 048
     Dates: start: 20110209, end: 20110213
  3. BISOPROLOL FUMARATE [Concomitant]
     Dosage: 2.5 MG, 1X/DAY
     Route: 048
     Dates: start: 20100611, end: 20110929
  4. LANSOPRAZOLE [Concomitant]
     Dosage: 15 MG DAILY
  5. LYRICA [Suspect]
     Dosage: 150 MG, 2X/DAY
     Route: 048
     Dates: start: 20110214, end: 20110929
  6. DIOVAN [Concomitant]
     Dosage: 80 MG/DAY
     Route: 048
     Dates: start: 20110209, end: 20110929
  7. ZETIA [Concomitant]
     Dosage: 10 MG DAILY
  8. ATELEC [Concomitant]
     Dosage: 20 MG/DAY
     Route: 048
     Dates: start: 20110209, end: 20110929
  9. EPADEL [Concomitant]
     Dosage: 900 MG DAILY

REACTIONS (3)
  - SINUS BRADYCARDIA [None]
  - BLOOD PRESSURE DECREASED [None]
  - CONDUCTION DISORDER [None]
